FAERS Safety Report 7306203-0 (Version None)
Quarter: 2011Q1

REPORT INFORMATION
  Report Type: 
  Country: None (occurrence: None)
  Receive Date: 20110222
  Receipt Date: 20110209
  Transmission Date: 20110831
  Serious: Yes (Other)
  Sender: FDA-Public Use
  Company Number: PHHY2011GB10378

PATIENT
  Age: 68 Year
  Sex: Female
  Weight: 60 kg

DRUGS (5)
  1. STATIN [Concomitant]
  2. AMLODIPINE [Concomitant]
  3. RAMIPRIL [Concomitant]
  4. ALENDRONIC ACID [Suspect]
     Indication: OSTEOPOROSIS PROPHYLAXIS
     Dosage: 70 MG, UNK
     Route: 048
  5. RANITIDINE [Concomitant]

REACTIONS (2)
  - RENAL DISORDER [None]
  - BLOOD PRESSURE INCREASED [None]
